APPROVED DRUG PRODUCT: ANEXSIA
Active Ingredient: ACETAMINOPHEN; HYDROCODONE BITARTRATE
Strength: 500MG;5MG
Dosage Form/Route: TABLET;ORAL
Application: A089160 | Product #001
Applicant: MALLINCKRODT CHEMICAL INC
Approved: Apr 23, 1987 | RLD: No | RS: No | Type: DISCN